FAERS Safety Report 24182102 (Version 1)
Quarter: 2024Q3

REPORT INFORMATION
  Report Type: Spontaneous
  Country: US (occurrence: US)
  Receive Date: 20240807
  Receipt Date: 20240807
  Transmission Date: 20241017
  Serious: Yes (Hospitalization, Other)
  Sender: AMGEN
  Company Number: US-AMGEN-USASP2024153985

PATIENT
  Age: 65 Year
  Sex: Female

DRUGS (1)
  1. PREDNISONE [Suspect]
     Active Substance: PREDNISONE
     Indication: Polymyalgia rheumatica
     Dosage: UNK
     Route: 048

REACTIONS (6)
  - Respiratory failure [Unknown]
  - Perihepatic abscess [Recovered/Resolved]
  - Actinomycotic pulmonary infection [Unknown]
  - Loose tooth [Unknown]
  - Tooth loss [Unknown]
  - Dental caries [Unknown]
